FAERS Safety Report 19029106 (Version 1)
Quarter: 2021Q1

REPORT INFORMATION
  Report Type: Spontaneous
  Country: CN (occurrence: CN)
  Receive Date: 20210318
  Receipt Date: 20210318
  Transmission Date: 20210420
  Serious: Yes (Other)
  Sender: FDA-Public Use
  Company Number: CN-PFIZER INC-2021276625

PATIENT
  Age: 28 Year
  Sex: Female
  Weight: 45 kg

DRUGS (5)
  1. SODIUM CHLORIDE. [Concomitant]
     Active Substance: SODIUM CHLORIDE
     Dosage: 250 ML, 1X/DAY (D1 COMBINED WITH BEVACIZUMAB)
     Route: 041
     Dates: start: 20210116, end: 20210116
  2. AVASTIN [Suspect]
     Active Substance: BEVACIZUMAB
     Indication: GASTRIC CANCER
     Dosage: 0.18 G, 1X/DAY
     Route: 041
     Dates: start: 20210116, end: 20210116
  3. CAMPTO [Suspect]
     Active Substance: IRINOTECAN
     Indication: GASTRIC CANCER
     Dosage: 0.24 G, 1X/DAY (SECOND LINE)
     Route: 041
     Dates: start: 20210116, end: 20210116
  4. KEYTRUDA [Suspect]
     Active Substance: PEMBROLIZUMAB
     Indication: GASTRIC CANCER
     Dosage: 200 MG, 1X/DAY
     Route: 041
     Dates: start: 20210116, end: 20210116
  5. SODIUM CHLORIDE. [Concomitant]
     Active Substance: SODIUM CHLORIDE
     Indication: VEHICLE SOLUTION USE
     Dosage: 100 ML, 1X/DAY (D1 Q14D + PEMBROLIZUMAB)
     Route: 041
     Dates: start: 20210116, end: 20210116

REACTIONS (3)
  - Gastric perforation [Not Recovered/Not Resolved]
  - Abdominal pain [Not Recovered/Not Resolved]
  - Off label use [Unknown]

NARRATIVE: CASE EVENT DATE: 20210116
